FAERS Safety Report 7297824-2 (Version None)
Quarter: 2011Q1

REPORT INFORMATION
  Report Type: 
  Country: None (occurrence: None)
  Receive Date: 20110217
  Receipt Date: 20100505
  Transmission Date: 20110831
  Serious: Yes (Other)
  Sender: FDA-Public Use
  Company Number: JP-RANBAXY-2010RR-33324

PATIENT
  Age: 58 Year
  Sex: Female
  Weight: 50 kg

DRUGS (5)
  1. AMIKACIN [Suspect]
  2. PROGRAF [Suspect]
     Indication: PROPHYLAXIS
     Dosage: 3 MG, BID
     Route: 048
  3. ACICLOVIR [Concomitant]
     Indication: INFECTION PROPHYLAXIS
  4. SIMVASTATIN [Concomitant]
     Dosage: 5 MG, UNK
  5. FLUCONAZOLE [Suspect]
     Dosage: 200 MG, UNK

REACTIONS (1)
  - RENAL IMPAIRMENT [None]
